FAERS Safety Report 7651397-0 (Version None)
Quarter: 2011Q3

REPORT INFORMATION
  Report Type: 
  Country: None (occurrence: None)
  Receive Date: 20110802
  Receipt Date: 20110722
  Transmission Date: 20111222
  Serious: Yes (Other)
  Sender: FDA-Public Use
  Company Number: PHHY2011CH62955

PATIENT
  Sex: Female

DRUGS (3)
  1. TYSABRI [Concomitant]
     Dosage: UNK UKN, UNK
     Dates: start: 20100501
  2. GILENYA [Suspect]
     Indication: MULTIPLE SCLEROSIS
     Dosage: 0.5 MG, UNK
     Route: 048
     Dates: start: 20110704, end: 20110715
  3. TYSABRI [Concomitant]
     Indication: RELAPSING-REMITTING MULTIPLE SCLEROSIS
     Dosage: 300 MG, UNK
     Route: 042
     Dates: start: 20061001, end: 20091001

REACTIONS (5)
  - CHEST DISCOMFORT [None]
  - DIZZINESS [None]
  - ANGINA PECTORIS [None]
  - DYSPNOEA [None]
  - HEADACHE [None]
